FAERS Safety Report 4608932-6 (Version None)
Quarter: 2005Q1

REPORT INFORMATION
  Report Type: 
  Country: None (occurrence: None)
  Receive Date: 20050315
  Receipt Date: 20050308
  Transmission Date: 20050727
  Serious: Yes (Hospitalization)
  Sender: FDA-Public Use
  Company Number: PHRM2005FR00987

PATIENT
  Age: 20 Year
  Sex: Male
  Weight: 51 kg

DRUGS (2)
  1. NEORAL [Suspect]
     Indication: ENTEROCOLITIS HAEMORRHAGIC
     Dosage: 250 MG PER DAY
     Route: 048
     Dates: start: 20050127
  2. CYCLOSPORINE [Concomitant]
     Indication: ENTEROCOLITIS HAEMORRHAGIC
     Dosage: 100 MG DAILY
     Route: 042
     Dates: start: 20050117, end: 20050126

REACTIONS (13)
  - ALANINE AMINOTRANSFERASE INCREASED [None]
  - ASPARTATE AMINOTRANSFERASE INCREASED [None]
  - BILIRUBIN CONJUGATED INCREASED [None]
  - BLOOD ALKALINE PHOSPHATASE INCREASED [None]
  - BLOOD BILIRUBIN INCREASED [None]
  - CHEST PAIN [None]
  - CYTOLYTIC HEPATITIS [None]
  - ELECTROCARDIOGRAM ST SEGMENT ABNORMAL [None]
  - EPIDIDYMITIS [None]
  - GAMMA-GLUTAMYLTRANSFERASE INCREASED [None]
  - PERICARDITIS [None]
  - PYREXIA [None]
  - TESTICULAR PAIN [None]
